FAERS Safety Report 6911046-3 (Version None)
Quarter: 2010Q3

REPORT INFORMATION
  Report Type: 
  Country: None (occurrence: None)
  Receive Date: 20100806
  Receipt Date: 20100729
  Transmission Date: 20110219
  Serious: Yes (Life-Threatening, Hospitalization)
  Sender: FDA-Public Use
  Company Number: B0667523A

PATIENT
  Sex: Male

DRUGS (6)
  1. AVANDAMET [Suspect]
     Route: 065
     Dates: start: 20080101, end: 20100701
  2. PREVISCAN [Concomitant]
     Indication: ATRIAL FIBRILLATION
     Route: 065
  3. CORTANCYL [Concomitant]
     Route: 065
  4. COKENZEN [Concomitant]
     Route: 065
  5. TENORMIN [Concomitant]
     Route: 065
  6. DIGOXIN [Concomitant]
     Route: 065

REACTIONS (11)
  - ARTERIOSCLEROSIS [None]
  - ARTERIOSPASM CORONARY [None]
  - BLOOD CREATININE INCREASED [None]
  - BLOOD POTASSIUM INCREASED [None]
  - CHEST PAIN [None]
  - CIRCULATORY COLLAPSE [None]
  - HAEMOGLOBIN DECREASED [None]
  - HYPOTENSION [None]
  - MYOCARDIAL INFARCTION [None]
  - PLATELET COUNT DECREASED [None]
  - RENAL FAILURE [None]
